FAERS Safety Report 4627943-8 (Version None)
Quarter: 2005Q2

REPORT INFORMATION
  Report Type: 
  Country: None (occurrence: None)
  Receive Date: 20050404
  Receipt Date: 20050404
  Transmission Date: 20051028
  Serious: Yes (Other)
  Sender: FDA-Public Use
  Company Number: None

PATIENT
  Age: 53 Year
  Sex: Male

DRUGS (10)
  1. OMEPRAZOLE [Suspect]
     Indication: GASTROOESOPHAGEAL REFLUX DISEASE
     Dosage: 1 DAILY (HAS BEEN ON BRAND NAME SINCE 8 YEARS)
  2. FUROSEMIDE [Concomitant]
  3. COZAAR [Concomitant]
  4. EFFEXOR XR [Concomitant]
  5. MORPHINE ER [Concomitant]
  6. OXYCODONE HCL [Concomitant]
  7. TRIAM/HCTZ [Concomitant]
  8. ACETABUTOLOL [Concomitant]
  9. GABAPENTIN [Concomitant]
  10. BUPROPION HCL [Concomitant]

REACTIONS (2)
  - GASTROOESOPHAGEAL REFLUX DISEASE [None]
  - PHARMACEUTICAL PRODUCT COMPLAINT [None]
